FAERS Safety Report 15694895 (Version 2)
Quarter: 2018Q4

REPORT INFORMATION
  Report Type: Spontaneous
  Country: DE (occurrence: DE)
  Receive Date: 20181206
  Receipt Date: 20181210
  Transmission Date: 20190205
  Serious: Yes (Hospitalization, Other)
  Sender: FDA-Public Use
  Company Number: PHHY2018DE171206

PATIENT
  Age: 11 Year
  Sex: Female
  Weight: 66.6 kg

DRUGS (3)
  1. NAPROXEN. [Concomitant]
     Active Substance: NAPROXEN
     Indication: PRODUCT USED FOR UNKNOWN INDICATION
     Dosage: UNK
     Route: 065
  2. METHOTREXATE. [Suspect]
     Active Substance: METHOTREXATE
     Indication: PRODUCT USED FOR UNKNOWN INDICATION
     Dosage: 20 MG, QW
     Route: 065
     Dates: start: 20161007
  3. ABATACEPT [Suspect]
     Active Substance: ABATACEPT
     Indication: SERONEGATIVE ARTHRITIS
     Dosage: 125 MG, UNK
     Route: 065
     Dates: start: 20160617, end: 20161223

REACTIONS (3)
  - Product use in unapproved indication [Unknown]
  - Abscess limb [Recovered/Resolved]
  - Subcutaneous abscess [Recovered/Resolved]

NARRATIVE: CASE EVENT DATE: 20170412
